FAERS Safety Report 5116912-X (Version None)
Quarter: 2006Q3

REPORT INFORMATION
  Report Type: 
  Country: None (occurrence: None)
  Receive Date: 20060927
  Receipt Date: 20060927
  Transmission Date: 20061208
  Serious: Yes (Hospitalization)
  Sender: FDA-Public Use
  Company Number: None

PATIENT
  Age: 67 Year
  Sex: Male

DRUGS (12)
  1. PHOSPHOSODA GINGER LEMON [Suspect]
     Indication: COLONOSCOPY
     Dosage: 90 ML; PO
     Route: 048
     Dates: start: 20060607
  2. GLUCOPHAGE [Concomitant]
  3. NORVASC [Concomitant]
  4. AMARYL [Concomitant]
  5. ACTOS [Concomitant]
  6. ATENOLOL [Concomitant]
  7. TRICOR [Concomitant]
  8. LESCOL XL [Concomitant]
  9. ZETIA [Concomitant]
  10. ASPIRIN [Concomitant]
  11. WELCHOL [Concomitant]
  12. NEXIUM [Concomitant]

REACTIONS (3)
  - DIALYSIS [None]
  - NEPHROCALCINOSIS [None]
  - RENAL FAILURE ACUTE [None]
